FAERS Safety Report 25311331 (Version 2)
Quarter: 2025Q2

REPORT INFORMATION
  Report Type: Spontaneous
  Country: JP (occurrence: JP)
  Receive Date: 20250514
  Receipt Date: 20250605
  Transmission Date: 20250717
  Serious: Yes (Death)
  Sender: DAIICHI
  Company Number: JP-DSJP-DS-2025-136884-JP

PATIENT
  Age: 6 Decade
  Sex: Female
  Weight: 52 kg

DRUGS (1)
  1. DATROWAY [Suspect]
     Active Substance: DATOPOTAMAB DERUXTECAN-DLNK
     Indication: HER2 negative breast cancer
     Dosage: 3 MG/KG, ONCE EVERY 3 WK
     Route: 041
     Dates: start: 20250415, end: 20250415

REACTIONS (2)
  - Disease progression [Fatal]
  - Prescribed underdose [Unknown]

NARRATIVE: CASE EVENT DATE: 20250101
